FAERS Safety Report 6295816-3 (Version None)
Quarter: 2009Q3

REPORT INFORMATION
  Report Type: 
  Country: None (occurrence: None)
  Receive Date: 20090731
  Receipt Date: 20090721
  Transmission Date: 20100115
  Serious: Yes (Hospitalization, Other)
  Sender: FDA-Public Use
  Company Number: ADE2009-0727

PATIENT
  Age: 2 Year
  Sex: Female
  Weight: 11.3 kg

DRUGS (1)
  1. AMLODIPINE [Suspect]
     Indication: HYPERTENSION
     Dates: start: 20060522, end: 20061005

REACTIONS (8)
  - ABSCESS [None]
  - ANURIA [None]
  - CATHETER RELATED COMPLICATION [None]
  - CATHETER RELATED INFECTION [None]
  - HEART RATE INCREASED [None]
  - PERITONEAL EFFLUENT ERYTHROCYTE COUNT INCREASED [None]
  - PERITONEAL EFFLUENT LEUKOCYTE COUNT INCREASED [None]
  - RESPIRATORY RATE INCREASED [None]
